FAERS Safety Report 19956359 (Version 2)
Quarter: 2021Q4

REPORT INFORMATION
  Report Type: Spontaneous
  Country: IT (occurrence: IT)
  Receive Date: 20211014
  Receipt Date: 20211125
  Transmission Date: 20220303
  Serious: No
  Sender: FDA-Public Use
  Company Number: IT-PFIZER INC-202101210480

PATIENT
  Sex: Female

DRUGS (1)
  1. FILGRASTIM [Suspect]
     Active Substance: FILGRASTIM
     Dosage: UNK

REACTIONS (4)
  - Product packaging difficult to open [Unknown]
  - Device leakage [Unknown]
  - Device use issue [Unknown]
  - Product use complaint [Unknown]
